FAERS Safety Report 15480408 (Version 1)
Quarter: 2018Q4

REPORT INFORMATION
  Report Type: Spontaneous
  Country: DE (occurrence: DE)
  Receive Date: 20181009
  Receipt Date: 20181009
  Transmission Date: 20190205
  Serious: Yes (Disabling)
  Sender: FDA-Public Use
  Company Number: DE-ASTRAZENECA-2018SF29520

PATIENT
  Age: 62 Year
  Sex: Female

DRUGS (8)
  1. ATORVASTATIN [Concomitant]
     Active Substance: ATORVASTATIN
  2. TELMISARTAN. [Concomitant]
     Active Substance: TELMISARTAN
  3. L-THYROXIN [Concomitant]
     Active Substance: LEVOTHYROXINE SODIUM
  4. ROFLUMILAST. [Suspect]
     Active Substance: ROFLUMILAST
     Route: 048
  5. TIOTROPIUM BROMIDE [Concomitant]
     Active Substance: TIOTROPIUM BROMIDE
  6. RANOLAZINE. [Concomitant]
     Active Substance: RANOLAZINE
  7. TORASEMIDE [Concomitant]
     Active Substance: TORSEMIDE
  8. TRAMADOL. [Concomitant]
     Active Substance: TRAMADOL

REACTIONS (1)
  - Oesophagitis [Unknown]

NARRATIVE: CASE EVENT DATE: 20180501
